FAERS Safety Report 5441173-1 (Version None)
Quarter: 2007Q3

REPORT INFORMATION
  Report Type: 
  Country: None (occurrence: None)
  Receive Date: 20070901
  Receipt Date: 20070821
  Transmission Date: 20080115
  Serious: Yes (Hospitalization)
  Sender: FDA-Public Use
  Company Number: CH-PFIZER INC-2007069339

PATIENT
  Age: 80 Year
  Sex: Female
  Weight: 66.5 kg

DRUGS (13)
  1. LYRICA [Suspect]
     Dosage: DAILY DOSE:100MG
     Route: 048
     Dates: start: 20070301, end: 20070425
  2. NOROXIN [Suspect]
     Indication: URINARY TRACT INFECTION
     Route: 048
     Dates: start: 20070425, end: 20070427
  3. BACTRIM [Suspect]
     Indication: URINARY TRACT INFECTION
     Dates: start: 20070427, end: 20070504
  4. COVERSUM [Concomitant]
     Route: 048
  5. GLUCOPHAGE [Concomitant]
     Route: 048
  6. PLAVIX [Concomitant]
     Route: 048
  7. PRAVASTATIN SODIUM [Concomitant]
     Route: 048
  8. PEVARYL [Concomitant]
     Route: 061
     Dates: start: 20070424, end: 20070507
  9. ONDANSETRON [Concomitant]
     Route: 048
     Dates: start: 20070428, end: 20070428
  10. PERENTEROL [Concomitant]
     Route: 048
     Dates: start: 20070427, end: 20070430
  11. LAXOBERON [Concomitant]
     Route: 048
     Dates: start: 20070430, end: 20070430
  12. NEXIUM [Concomitant]
     Route: 048
     Dates: start: 20070502, end: 20070503
  13. ULCOGANT [Concomitant]
     Route: 048
     Dates: start: 20070503, end: 20070511

REACTIONS (5)
  - HYPERSENSITIVITY [None]
  - PRURITUS [None]
  - RASH [None]
  - RASH MACULO-PAPULAR [None]
  - RENAL FAILURE ACUTE [None]
